FAERS Safety Report 21420836 (Version 1)
Quarter: 2022Q4

REPORT INFORMATION
  Report Type: Spontaneous
  Country: GB (occurrence: None)
  Receive Date: 20221007
  Receipt Date: 20221007
  Transmission Date: 20230113
  Serious: Yes (Other)
  Sender: FDA-Public Use
  Company Number: GB-ROCHE-3194316

PATIENT
  Sex: Female

DRUGS (2)
  1. OCREVUS [Suspect]
     Active Substance: OCRELIZUMAB
     Indication: Multiple sclerosis
     Dosage: INFUSION SCHEDULED EVERY 6 HOURS
     Route: 041
     Dates: start: 20211019, end: 20211019
  2. RITUXIMAB [Suspect]
     Active Substance: RITUXIMAB
     Indication: Product used for unknown indication
     Route: 065

REACTIONS (3)
  - Rash [Recovered/Resolved]
  - Skin swelling [Unknown]
  - Haemolytic anaemia [Unknown]

NARRATIVE: CASE EVENT DATE: 20211021
